FAERS Safety Report 4971689-3 (Version None)
Quarter: 2006Q2

REPORT INFORMATION
  Report Type: 
  Country: None (occurrence: None)
  Receive Date: 20060413
  Receipt Date: 20051202
  Transmission Date: 20061013
  Serious: Yes (Hospitalization)
  Sender: FDA-Public Use
  Company Number: HQWYE839506DEC05

PATIENT
  Sex: Female

DRUGS (9)
  1. ENBREL [Suspect]
     Indication: RHEUMATOID ARTHRITIS
     Route: 058
     Dates: start: 20051122
  2. RHEUMATREX [Suspect]
     Indication: RHEUMATOID ARTHRITIS
     Route: 048
     Dates: start: 20050527, end: 20051201
  3. PREDONINE [Suspect]
     Indication: RHEUMATOID ARTHRITIS
     Route: 048
     Dates: end: 20051201
  4. PARIET [Concomitant]
  5. GLUCOBAY [Concomitant]
  6. GLIMEPIRIDE [Concomitant]
  7. EVISTA [Concomitant]
  8. BUSCOPAN [Concomitant]
  9. ISONIAZID [Concomitant]
     Dates: start: 20051116

REACTIONS (3)
  - PLEURISY [None]
  - PYREXIA [None]
  - URINARY RETENTION [None]
